FAERS Safety Report 13641741 (Version 5)
Quarter: 2018Q3

REPORT INFORMATION
  Report Type: Spontaneous
  Country: US (occurrence: US)
  Receive Date: 20170612
  Receipt Date: 20180807
  Transmission Date: 20181010
  Serious: No
  Sender: FDA-Public Use
  Company Number: US-ASTRAZENECA-2017SE60347

PATIENT
  Sex: Female

DRUGS (11)
  1. SEROQUEL [Suspect]
     Active Substance: QUETIAPINE FUMARATE
     Dosage: GENERIC 50MG FOR THREE DAYS
     Route: 065
  2. OMEPRAZOLE. [Concomitant]
     Active Substance: OMEPRAZOLE
  3. EFFEXOR [Concomitant]
     Active Substance: VENLAFAXINE HYDROCHLORIDE
  4. HYDROXYZINE [Concomitant]
     Active Substance: HYDROXYZINE HYDROCHLORIDE
  5. WELLBUTRIN [Concomitant]
     Active Substance: BUPROPION HYDROCHLORIDE
  6. SEROQUEL [Suspect]
     Active Substance: QUETIAPINE FUMARATE
     Dosage: GENERIC 100 MG AT NIGHT
     Route: 065
  7. ZOFRAN [Concomitant]
     Active Substance: ONDANSETRON HYDROCHLORIDE
  8. SEROQUEL [Suspect]
     Active Substance: QUETIAPINE FUMARATE
     Dosage: 200 MG GENERIC SEROQUEL AT NIGHT, BUT TAKES 50 MG AS REQUIRED DURING DAYTIME HOURS AS WELL
     Route: 065
  9. REMERON [Concomitant]
     Active Substance: MIRTAZAPINE
  10. SEROQUEL [Suspect]
     Active Substance: QUETIAPINE FUMARATE
     Route: 048
  11. SEROQUEL [Suspect]
     Active Substance: QUETIAPINE FUMARATE
     Dosage: QUETIAPINE, 100 MG, AT NIGHT
     Route: 065

REACTIONS (10)
  - Musculoskeletal stiffness [Unknown]
  - Night sweats [Unknown]
  - Dizziness [Unknown]
  - Chest discomfort [Unknown]
  - Dyskinesia [Unknown]
  - Heart rate abnormal [Unknown]
  - Head discomfort [Unknown]
  - Feeling abnormal [Unknown]
  - Retching [Unknown]
  - Vomiting [Unknown]
